FAERS Safety Report 25738262 (Version 1)
Quarter: 2025Q3

REPORT INFORMATION
  Report Type: Spontaneous
  Country: EU (occurrence: EU)
  Receive Date: 20250829
  Receipt Date: 20250829
  Transmission Date: 20251021
  Serious: No
  Sender: ALKEM
  Company Number: None

PATIENT
  Age: 67 Year
  Sex: Female
  Weight: 72 kg

DRUGS (1)
  1. PREGABALIN [Suspect]
     Active Substance: PREGABALIN
     Indication: Polyneuropathy
     Dosage: 125 MILLIGRAM, QD (EVERY 1 DAY)
     Route: 048

REACTIONS (3)
  - Musculoskeletal stiffness [Recovered/Resolved]
  - Vision blurred [Recovered/Resolved]
  - Pain in extremity [Recovered/Resolved]

NARRATIVE: CASE EVENT DATE: 20241201
